FAERS Safety Report 8313932-9 (Version None)
Quarter: 2012Q2

REPORT INFORMATION
  Report Type: 
  Country: None (occurrence: None)
  Receive Date: 20120426
  Receipt Date: 20120426
  Transmission Date: 20120825
  Serious: No
  Sender: FDA-Public Use
  Company Number: None

PATIENT
  Age: 33 Year
  Sex: Female
  Weight: 47.627 kg

DRUGS (5)
  1. TRI-SPRINTEC [Concomitant]
  2. LAMOTRGINE [Suspect]
     Indication: AFFECTIVE DISORDER
     Dosage: 200.0 MG
     Dates: start: 20120201, end: 20120401
  3. LAMOTRGINE [Suspect]
     Indication: AFFECTIVE DISORDER
     Dosage: 200.0 MG
  4. WELLBUTRIN XL [Concomitant]
     Indication: DEPRESSION
  5. DEPLIN [Concomitant]

REACTIONS (2)
  - PRODUCT SUBSTITUTION ISSUE [None]
  - DRUG EFFECT DECREASED [None]
